FAERS Safety Report 17432014 (Version 1)
Quarter: 2020Q1

REPORT INFORMATION
  Report Type: Spontaneous
  Country: US (occurrence: US)
  Receive Date: 20200218
  Receipt Date: 20200218
  Transmission Date: 20200409
  Serious: Yes (Other)
  Sender: FDA-Public Use
  Company Number: US-BAUSCH-BL-2020-004025

PATIENT
  Age: 64 Year
  Sex: Female

DRUGS (2)
  1. MURO 128 [Suspect]
     Active Substance: SODIUM CHLORIDE
     Indication: DRY EYE
     Dosage: RIGHT EYE AT NIGHT PUTTING A STRIP OF OINTMENT ON CLEAN FINGER, PULLING DOWN EYELID, OCT OR NOV/2019
     Route: 047
     Dates: start: 2019, end: 202001
  2. MURO 128 [Suspect]
     Active Substance: SODIUM CHLORIDE
     Indication: PRODUCT USE IN UNAPPROVED INDICATION
     Dosage: RIGHT EYE AT NIGHT PUTTING A STRIP OF OINTMENT ON CLEAN FINGER, PULLING DOWN EYELID, OCT OR NOV/2019
     Route: 047
     Dates: start: 2019, end: 202001

REACTIONS (2)
  - Corneal abrasion [Recovered/Resolved]
  - Product use in unapproved indication [Unknown]

NARRATIVE: CASE EVENT DATE: 2019
